FAERS Safety Report 9303746 (Version 3)
Quarter: 2013Q3

REPORT INFORMATION
  Report Type: Spontaneous
  Country: US (occurrence: US)
  Receive Date: 20130522
  Receipt Date: 20130805
  Transmission Date: 20140515
  Serious: Yes (Hospitalization)
  Sender: FDA-Public Use
  Company Number: US-GLAXOSMITHKLINE-A1023706A

PATIENT
  Age: 45 Year
  Sex: Male

DRUGS (3)
  1. ADVAIR [Suspect]
     Indication: ASTHMA
     Route: 055
  2. VENTOLIN [Suspect]
     Indication: ASTHMA
     Dosage: 90MCG AS REQUIRED
     Route: 055
     Dates: start: 2008
  3. NO CONCURRENT MEDICATION [Concomitant]

REACTIONS (3)
  - Asthma [Not Recovered/Not Resolved]
  - Oxygen saturation decreased [Not Recovered/Not Resolved]
  - Drug administration error [Unknown]
